FAERS Safety Report 6703530-2 (Version None)
Quarter: 2010Q2

REPORT INFORMATION
  Report Type: 
  Country: None (occurrence: None)
  Receive Date: 20100430
  Receipt Date: 20100423
  Transmission Date: 20101027
  Serious: Yes (Hospitalization)
  Sender: FDA-Public Use
  Company Number: JP-BRISTOL-MYERS SQUIBB COMPANY-14496574

PATIENT
  Age: 74 Year
  Sex: Female
  Weight: 36 kg

DRUGS (6)
  1. ERBITUX [Suspect]
     Indication: RECTAL CANCER
     Dosage: 300 MG,IV 11DEC08-31DEC08(20 DAYS).300 MG,IV, 1 IN 1 WEEK,15JAN09-CONT.LAST DOSE: 4JUN09
     Route: 042
     Dates: start: 20081204, end: 20090604
  2. IRINOTECAN HCL [Suspect]
     Indication: RECTAL CANCER
     Dosage: IST INF:04DEC08-18DEC08(180MG);29JAN09-12FEB09(100MG);26FEB09(120MG).TOTAL:3INF
     Route: 042
     Dates: start: 20081204, end: 20090528
  3. ZOMETA [Suspect]
     Indication: METASTASES TO BONE
     Route: 042
     Dates: start: 20081218, end: 20081218
  4. VENA [Concomitant]
     Indication: PREMEDICATION
     Dosage: VENA TABLET.
     Route: 048
     Dates: start: 20081204, end: 20090604
  5. DEXART [Concomitant]
     Indication: PREMEDICATION
     Route: 042
     Dates: start: 20081204, end: 20090604
  6. KYTRIL [Concomitant]
     Indication: ANTIEMETIC SUPPORTIVE CARE
     Route: 042
     Dates: start: 20071228, end: 20090604

REACTIONS (5)
  - DECREASED APPETITE [None]
  - DIARRHOEA [None]
  - HYPOCALCAEMIA [None]
  - HYPOMAGNESAEMIA [None]
  - PNEUMONIA [None]
